FAERS Safety Report 4796425-5 (Version None)
Quarter: 2005Q4

REPORT INFORMATION
  Report Type: 
  Country: None (occurrence: None)
  Receive Date: 20051011
  Receipt Date: 20050207
  Transmission Date: 20060501
  Serious: No
  Sender: FDA-Public Use
  Company Number: FPI-05 (A)

PATIENT
  Age: 26 Year
  Sex: Female
  Weight: 97.5234 kg

DRUGS (1)
  1. REPRONEX [Suspect]
     Indication: OVULATION INDUCTION
     Dosage: 75 IU, QD, SC
     Route: 058
     Dates: start: 20050127, end: 20050202

REACTIONS (1)
  - SKIN REACTION [None]
